FAERS Safety Report 8312264-2 (Version None)
Quarter: 2012Q2

REPORT INFORMATION
  Report Type: 
  Country: None (occurrence: None)
  Receive Date: 20120425
  Receipt Date: 20120413
  Transmission Date: 20120825
  Serious: Yes (Death, Hospitalization)
  Sender: FDA-Public Use
  Company Number: FR-CELGENEUS-056-50794-12031895

PATIENT
  Sex: Male
  Weight: 65 kg

DRUGS (19)
  1. FINASTERIDE [Concomitant]
     Route: 065
  2. CEFTAZIDIME [Concomitant]
     Dosage: 4.8 GRAM
     Route: 041
  3. NEORECORMON [Concomitant]
     Route: 058
  4. BRICANYL [Concomitant]
     Dosage: 15 MILLIGRAM
     Route: 065
  5. DEXTROSE 5% [Concomitant]
     Dosage: 500 MILLIGRAM/MILLILITERS
     Route: 065
  6. SINGULAIR [Concomitant]
     Route: 065
  7. BACTRIM DS [Concomitant]
     Route: 065
  8. FLUTICASONE PROPIONATE/SALMETEROL [Concomitant]
     Route: 065
  9. VITAMINS B1/B6 [Concomitant]
     Dosage: 500 MILLIGRAM
     Route: 065
  10. VALACYCLOVIR HYDROCHLORIDE [Concomitant]
     Dosage: 500 MILLIGRAM
     Route: 065
  11. NEXIUM [Concomitant]
     Dosage: 20 MILLIGRAM
     Route: 065
  12. AMLODIPINE BESYLATE [Concomitant]
     Route: 065
  13. CERNEVIT-12 [Concomitant]
     Route: 065
  14. LOVENOX [Concomitant]
     Dosage: .4 MILLILITER
     Route: 058
  15. VIDAZA [Suspect]
     Dosage: 75 MILLIGRAM/SQ. METER
     Route: 065
     Dates: start: 20120110, end: 20120112
  16. ORACILLIN [Concomitant]
     Indication: PROPHYLAXIS
     Route: 065
  17. TAMSULOSIN HCL [Concomitant]
     Route: 065
  18. NEORECORMON [Concomitant]
     Route: 058
     Dates: start: 20120131
  19. ATROVENT [Concomitant]
     Dosage: 1.5 MILLIGRAM
     Route: 065

REACTIONS (2)
  - LUNG DISORDER [None]
  - ACUTE RESPIRATORY DISTRESS SYNDROME [None]
